FAERS Safety Report 24739096 (Version 1)
Quarter: 2024Q4

REPORT INFORMATION
  Report Type: Spontaneous
  Country: US (occurrence: US)
  Receive Date: 20241216
  Receipt Date: 20241216
  Transmission Date: 20250114
  Serious: No
  Sender: PFIZER
  Company Number: US-PFIZER INC-PV202400157217

PATIENT
  Age: 34 Year
  Sex: Female

DRUGS (3)
  1. PALBOCICLIB [Suspect]
     Active Substance: PALBOCICLIB
     Indication: Breast cancer metastatic
     Dosage: DAYS 1-21 Q28
     Dates: start: 202112
  2. LETROZOLE [Suspect]
     Active Substance: LETROZOLE
     Indication: Breast cancer metastatic
     Dosage: UNK
     Dates: start: 202112
  3. LEUPROLIDE ACETATE [Suspect]
     Active Substance: LEUPROLIDE ACETATE
     Indication: Breast cancer metastatic
     Dosage: UNK
     Dates: start: 202112

REACTIONS (5)
  - Neutrophil count decreased [Unknown]
  - Affective disorder [Unknown]
  - Hot flush [Unknown]
  - Fatigue [Unknown]
  - Neoplasm progression [Unknown]
